FAERS Safety Report 6425728-3 (Version None)
Quarter: 2009Q4

REPORT INFORMATION
  Report Type: 
  Country: None (occurrence: None)
  Receive Date: 20091103
  Receipt Date: 20091026
  Transmission Date: 20100525
  Serious: Yes (Hospitalization)
  Sender: FDA-Public Use
  Company Number: PHEH2009US14605

PATIENT
  Sex: Female

DRUGS (1)
  1. EXJADE [Suspect]
     Indication: HAEMATOLOGICAL MALIGNANCY
     Dosage: 500 MG, QD
     Route: 048

REACTIONS (1)
  - PNEUMONIA VIRAL [None]
